FAERS Safety Report 11201806 (Version 1)
Quarter: 2015Q2

REPORT INFORMATION
  Report Type: Spontaneous
  Country: IT (occurrence: IT)
  Receive Date: 20150619
  Receipt Date: 20150619
  Transmission Date: 20150821
  Serious: Yes (Hospitalization)
  Sender: FDA-Public Use
  Company Number: IT-HOSPIRA-2899830

PATIENT
  Age: 10 Month
  Sex: Female
  Weight: 8 kg

DRUGS (6)
  1. PREDNISONE. [Concomitant]
     Active Substance: PREDNISONE
     Indication: FIBROUS HISTIOCYTOMA
     Dosage: DISTRIBUTED IN THE DAY AT DIFFERENT TIMES AT 5MG, 2.5 MG, AND 2.5 MG
  2. CYTARABINE. [Suspect]
     Active Substance: CYTARABINE
     Indication: CHEMOTHERAPY
     Dosage: DAILY
     Route: 042
     Dates: start: 20150525, end: 20150526
  3. VINBLASTINE SULFATE. [Suspect]
     Active Substance: VINBLASTINE SULFATE
     Indication: CHEMOTHERAPY
     Dosage: WEEKLY
     Dates: start: 20150220, end: 20150402
  4. VINBLASTINE SULFATE. [Suspect]
     Active Substance: VINBLASTINE SULFATE
     Indication: CHEMOTHERAPY
     Dosage: WEEKLY
     Dates: start: 20150424, end: 20150514
  5. MEROPENEM. [Concomitant]
     Active Substance: MEROPENEM
     Indication: CHEMOTHERAPY
     Dates: start: 20150524
  6. CLADRIBINE. [Suspect]
     Active Substance: CLADRIBINE
     Indication: CHEMOTHERAPY
     Dosage: DAILY
     Dates: start: 20150526, end: 20150527

REACTIONS (6)
  - Hepatomegaly [Recovering/Resolving]
  - Thrombocytopenia [Recovering/Resolving]
  - Cholestasis [Recovering/Resolving]
  - Abnormal weight gain [Recovering/Resolving]
  - Venoocclusive disease [Recovering/Resolving]
  - Dyspnoea [Recovering/Resolving]

NARRATIVE: CASE EVENT DATE: 20150527
